FAERS Safety Report 15898307 (Version 1)
Quarter: 2019Q1

REPORT INFORMATION
  Report Type: Spontaneous
  Country: PT (occurrence: PT)
  Receive Date: 20190201
  Receipt Date: 20190201
  Transmission Date: 20190417
  Serious: Yes (Hospitalization)
  Sender: FDA-Public Use
  Company Number: PT-ASTRAZENECA-2019SE15589

PATIENT
  Sex: Female

DRUGS (1)
  1. BIRESP SPIROMAX [Suspect]
     Active Substance: BUDESONIDE\FORMOTEROL FUMARATE
     Dosage: ONE DOSE FORM WAS COMPOSED BY 160 ?G+ 4.5 ?G BUDESONIDE + FORMOTEROL UNKNOWN
     Route: 055

REACTIONS (4)
  - Condition aggravated [Unknown]
  - Product dose omission [Unknown]
  - Hospitalisation [Unknown]
  - Device dispensing error [Unknown]
